FAERS Safety Report 7646266-6 (Version None)
Quarter: 2011Q3

REPORT INFORMATION
  Report Type: 
  Country: None (occurrence: None)
  Receive Date: 20110801
  Receipt Date: 20110726
  Transmission Date: 20111222
  Serious: No
  Sender: FDA-Public Use
  Company Number: US-BIOGENIDEC-2011BI027969

PATIENT
  Sex: Female

DRUGS (4)
  1. TYSABRI [Suspect]
     Indication: MULTIPLE SCLEROSIS
     Route: 042
     Dates: start: 20110609
  2. AVONEX [Concomitant]
     Route: 030
     Dates: start: 20020101
  3. TYSABRI [Suspect]
     Route: 042
     Dates: start: 20071107, end: 20100818
  4. AVONEX [Concomitant]
     Indication: MULTIPLE SCLEROSIS
     Route: 030
     Dates: start: 20060307

REACTIONS (1)
  - STRESS [None]
